FAERS Safety Report 9520879 (Version 1)
Quarter: 2013Q3

REPORT INFORMATION
  Report Type: Spontaneous
  Country: CA (occurrence: CA)
  Receive Date: 20130913
  Receipt Date: 20130913
  Transmission Date: 20140515
  Serious: Yes (Other)
  Sender: FDA-Public Use
  Company Number: CA-ASTRAZENECA-2013SE68001

PATIENT
  Age: 86 Year
  Sex: Female

DRUGS (3)
  1. LOSEC [Suspect]
     Indication: APPENDICITIS PERFORATED
     Route: 048
     Dates: start: 2002, end: 2002
  2. LOSEC [Suspect]
     Indication: APPENDICITIS PERFORATED
     Dosage: GENERIC
     Route: 065
     Dates: start: 2005
  3. LOSEC [Suspect]
     Indication: APPENDICITIS PERFORATED
     Route: 048

REACTIONS (11)
  - Pleural effusion [Not Recovered/Not Resolved]
  - Dysuria [Not Recovered/Not Resolved]
  - Vomiting [Unknown]
  - Chest pain [Unknown]
  - Haemoptysis [Recovered/Resolved]
  - Abdominal distension [Not Recovered/Not Resolved]
  - Swelling [Not Recovered/Not Resolved]
  - Dyspnoea [Not Recovered/Not Resolved]
  - Malaise [Unknown]
  - Local swelling [Not Recovered/Not Resolved]
  - Drug ineffective [Unknown]
